FAERS Safety Report 7463465-7 (Version None)
Quarter: 2011Q2

REPORT INFORMATION
  Report Type: 
  Country: None (occurrence: None)
  Receive Date: 20110506
  Receipt Date: 20110502
  Transmission Date: 20111010
  Serious: Yes (Hospitalization)
  Sender: FDA-Public Use
  Company Number: US-ABBOTT-11P-163-0722760-00

PATIENT
  Age: 40 Year
  Sex: Male

DRUGS (7)
  1. ADDERALL 10 [Concomitant]
     Indication: ATTENTION DEFICIT/HYPERACTIVITY DISORDER
     Dosage: DAILY
     Route: 048
  2. HUMIRA [Suspect]
     Indication: PSORIASIS
     Dosage: LOADING DOSE
     Dates: start: 20110429, end: 20110429
  3. DIAZEPAM [Concomitant]
     Indication: ANXIETY
     Route: 048
  4. ALBUTEROL [Concomitant]
     Indication: PRODUCT USED FOR UNKNOWN INDICATION
  5. LISINOPRIL [Concomitant]
     Indication: HYPERTENSION
     Dosage: DAILY
     Route: 048
  6. OMEPRAZOLE [Concomitant]
     Indication: GASTRIC DISORDER
     Dosage: DAILY
  7. HYDROCHLOROTHIAZIDE [Concomitant]
     Indication: HYPERTENSION
     Dosage: DAILY
     Route: 048

REACTIONS (10)
  - PRURITUS [None]
  - PAPULE [None]
  - TREMOR [None]
  - HYPOAESTHESIA ORAL [None]
  - EYELID OEDEMA [None]
  - PHARYNGEAL HYPOAESTHESIA [None]
  - DYSPNOEA [None]
  - HYPOAESTHESIA FACIAL [None]
  - NAUSEA [None]
  - BLOOD PRESSURE INCREASED [None]
